FAERS Safety Report 5511461-9 (Version None)
Quarter: 2007Q4

REPORT INFORMATION
  Report Type: 
  Country: None (occurrence: None)
  Receive Date: 20071109
  Receipt Date: 20071031
  Transmission Date: 20080405
  Serious: Yes (Hospitalization)
  Sender: FDA-Public Use
  Company Number: JP-JNJFOC-20071102736

PATIENT
  Age: 86 Year
  Sex: Female

DRUGS (1)
  1. CRAVIT [Suspect]
     Indication: INFECTION
     Route: 048

REACTIONS (3)
  - BLOOD PRESSURE DECREASED [None]
  - DYSPNOEA [None]
  - HEPATITIS [None]
